FAERS Safety Report 10020801 (Version 1)
Quarter: 2013Q4

REPORT INFORMATION
  Report Type: Spontaneous
  Country: US (occurrence: None)
  Receive Date: 20131203
  Receipt Date: 20131203
  Transmission Date: 20140711
  Serious: Yes (Hospitalization)
  Sender: FDA-Public Use
  Company Number: AUR-APL-2013-09917

PATIENT
  Age: 53 Year
  Sex: Female
  Weight: 144.2 kg

DRUGS (1)
  1. VENLAFAXINE (VENLAFAXINE) [Suspect]
     Indication: DEPRESSION
     Dates: start: 2010, end: 2010

REACTIONS (2)
  - Drug ineffective [None]
  - Malaise [None]
